FAERS Safety Report 21805593 (Version 1)
Quarter: 2023Q1

REPORT INFORMATION
  Report Type: Spontaneous
  Country: US (occurrence: US)
  Receive Date: 20230102
  Receipt Date: 20230102
  Transmission Date: 20230418
  Serious: Yes (Other)
  Sender: FDA-Public Use
  Company Number: US-MLMSERVICE-20221215-3984029-1

PATIENT
  Age: 41 Year
  Sex: Female

DRUGS (8)
  1. METHOTREXATE [Suspect]
     Active Substance: METHOTREXATE
     Indication: Crohn^s disease
  2. INFLIXIMAB [Suspect]
     Active Substance: INFLIXIMAB
     Indication: Arthropathy
     Dosage: EVERY 8 WEEKS
  3. PREDNISONE [Suspect]
     Active Substance: PREDNISONE
     Indication: Arthropathy
  4. PREDNISONE [Suspect]
     Active Substance: PREDNISONE
     Indication: Crohn^s disease
  5. INFLIXIMAB [Suspect]
     Active Substance: INFLIXIMAB
     Indication: Crohn^s disease
     Dosage: EVERY 8 WEEKS
  6. METHOTREXATE [Suspect]
     Active Substance: METHOTREXATE
     Indication: Arthropathy
  7. PREDNISONE [Suspect]
     Active Substance: PREDNISONE
     Indication: Arthropathy
  8. PREDNISONE [Suspect]
     Active Substance: PREDNISONE
     Indication: Arthropathy

REACTIONS (2)
  - Mycobacterium marinum infection [Unknown]
  - Skin infection [Unknown]
